FAERS Safety Report 24707965 (Version 3)
Quarter: 2025Q2

REPORT INFORMATION
  Report Type: Report from Study
  Country: JP (occurrence: JP)
  Receive Date: 20241206
  Receipt Date: 20250423
  Transmission Date: 20250716
  Serious: Yes (Death)
  Sender: SHIONOGI
  Company Number: JP-shionogi-202405404_FTR_P_1

PATIENT
  Age: 1 Year
  Sex: Female
  Weight: 6.7 kg

DRUGS (15)
  1. CEFIDEROCOL [Suspect]
     Active Substance: CEFIDEROCOL
     Indication: Haemorrhagic pneumonia
     Route: 041
     Dates: start: 20240714, end: 20240716
  2. BUSULFAN [Suspect]
     Active Substance: BUSULFAN
     Indication: Stem cell transplant
     Route: 065
  3. PREDONINE [Concomitant]
     Active Substance: PREDNISOLONE
     Indication: Product used for unknown indication
     Route: 065
     Dates: end: 20240719
  4. PREDONINE [Concomitant]
     Active Substance: PREDNISOLONE
     Indication: Pulmonary haemorrhage
  5. PREDONINE [Concomitant]
     Active Substance: PREDNISOLONE
     Indication: Pulmonary toxicity
  6. SULFAMETHOXAZOLE\TRIMETHOPRIM [Concomitant]
     Active Substance: SULFAMETHOXAZOLE\TRIMETHOPRIM
     Indication: Haemorrhagic pneumonia
     Dosage: 3 TIMES WEEKLY, SINCE MORE THAN 2 WEEKS BEFORE THE START OF FETROJA
     Route: 048
     Dates: end: 20240808
  7. MAXIPIME [Concomitant]
     Active Substance: CEFEPIME HYDROCHLORIDE
     Indication: Haemorrhagic pneumonia
     Route: 065
     Dates: start: 20240714, end: 20240714
  8. MICAFUNGIN SODIUM [Concomitant]
     Active Substance: MICAFUNGIN SODIUM
     Indication: Product used for unknown indication
     Route: 065
     Dates: end: 20240714
  9. PROGRAF [Concomitant]
     Active Substance: TACROLIMUS
     Indication: Product used for unknown indication
     Route: 048
     Dates: end: 20240808
  10. MORPHINE HYDROCHLORIDE [Concomitant]
     Active Substance: MORPHINE HYDROCHLORIDE
     Indication: Product used for unknown indication
     Route: 065
     Dates: start: 20240714, end: 20240808
  11. MIDAZOLAM [Concomitant]
     Active Substance: MIDAZOLAM
     Indication: Product used for unknown indication
     Route: 065
     Dates: start: 20240714, end: 20240808
  12. ROCURONIUM BROMIDE [Concomitant]
     Active Substance: ROCURONIUM BROMIDE
     Indication: Product used for unknown indication
     Route: 065
     Dates: start: 20240714, end: 20240808
  13. AMBISOME [Concomitant]
     Active Substance: AMPHOTERICIN B
     Indication: Product used for unknown indication
     Route: 065
     Dates: start: 20240714, end: 20240808
  14. GANCICLOVIR [Concomitant]
     Active Substance: GANCICLOVIR
     Indication: Product used for unknown indication
     Route: 065
     Dates: start: 20240714, end: 20240808
  15. PREVYMIS [Concomitant]
     Active Substance: LETERMOVIR
     Indication: Product used for unknown indication
     Route: 065
     Dates: start: 20240714, end: 20240808

REACTIONS (4)
  - Pulmonary haemorrhage [Fatal]
  - Pulmonary toxicity [Fatal]
  - Off label use [Unknown]
  - Product administered to patient of inappropriate age [Unknown]

NARRATIVE: CASE EVENT DATE: 20240714
